FAERS Safety Report 9700254 (Version 1)
Quarter: 2013Q4

REPORT INFORMATION
  Report Type: Spontaneous
  Country: GB (occurrence: None)
  Receive Date: 20131119
  Receipt Date: 20131119
  Transmission Date: 20140711
  Serious: Yes (Hospitalization)
  Sender: FDA-Public Use
  Company Number: AUR-APL-2013-09544

PATIENT
  Age: 53 Year
  Sex: Female

DRUGS (2)
  1. GABAPENTIN (GABAPENTIN) [Suspect]
     Dosage: 200 MG (100 MG, 2 IN 1 D), UNKNOWN
  2. ALCOHOL (ETHANOL) [Suspect]
     Dosage: UNKNOWN

REACTIONS (3)
  - Alcohol interaction [None]
  - Drug level decreased [None]
  - Alcohol poisoning [None]
